FAERS Safety Report 19217280 (Version 1)
Quarter: 2021Q2

REPORT INFORMATION
  Report Type: Spontaneous
  Country: US (occurrence: US)
  Receive Date: 20210505
  Receipt Date: 20210505
  Transmission Date: 20210717
  Serious: Yes (Hospitalization)
  Sender: FDA-Public Use
  Company Number: None

PATIENT
  Age: 65 Year
  Sex: Female

DRUGS (11)
  1. SIMETHICONE (DIMETHICONE) [Concomitant]
     Active Substance: DIMETHICONE
  2. SERTRALINE [Concomitant]
     Active Substance: SERTRALINE HYDROCHLORIDE
  3. CINNAMON. [Concomitant]
     Active Substance: CINNAMON
  4. LEVOTHYROXINE. [Concomitant]
     Active Substance: LEVOTHYROXINE
  5. LOPERAMIDE [Concomitant]
     Active Substance: LOPERAMIDE
  6. ONDANSETRON [Concomitant]
     Active Substance: ONDANSETRON
  7. PROCHLORPERAZINE. [Concomitant]
     Active Substance: PROCHLORPERAZINE
  8. FAMOTIDINE. [Concomitant]
     Active Substance: FAMOTIDINE
  9. CRANBERRY. [Concomitant]
     Active Substance: CRANBERRY
  10. CAPECITABINE. [Suspect]
     Active Substance: CAPECITABINE
     Route: 048
     Dates: start: 20210305, end: 20210505
  11. MULIVITAMIN [Concomitant]

REACTIONS (1)
  - Diarrhoea [None]

NARRATIVE: CASE EVENT DATE: 20210505
